FAERS Safety Report 6560339-0 (Version None)
Quarter: 2010Q1

REPORT INFORMATION
  Report Type: 
  Country: None (occurrence: None)
  Receive Date: 20100129
  Receipt Date: 20091013
  Transmission Date: 20100710
  Serious: No
  Sender: FDA-Public Use
  Company Number: US-ABBOTT-09P-163-0598409-00

PATIENT
  Sex: Female
  Weight: 64.468 kg

DRUGS (12)
  1. HUMIRA [Suspect]
     Indication: RHEUMATOID ARTHRITIS
     Route: 058
     Dates: start: 20090501
  2. PREDNISONE [Concomitant]
     Indication: HEPATITIS
     Route: 048
     Dates: start: 20090601
  3. PREDNISONE [Concomitant]
     Dosage: ACCORDING TO LIVER PANEL
     Route: 048
  4. ZETIA [Concomitant]
     Indication: BLOOD CHOLESTEROL
     Route: 048
  5. ATENOLOL [Concomitant]
     Indication: HEART RATE
     Route: 048
  6. LASIX [Concomitant]
     Indication: DIURETIC THERAPY
     Dosage: EVERY OTHER DAY ALTERNATING WITH 20MG
     Route: 048
  7. LASIX [Concomitant]
     Dosage: ALTERNATING EVERY OTHER DAY WITH 40MG
     Route: 048
  8. LOTENSIN [Concomitant]
     Indication: HYPERTENSION
     Route: 048
     Dates: end: 20090925
  9. LOTENSIN [Concomitant]
     Route: 048
     Dates: start: 20090915, end: 20090921
  10. FOLIC ACID [Concomitant]
     Indication: VITAMIN SUPPLEMENTATION
     Route: 048
  11. NEXIUM [Concomitant]
     Indication: ULCER
     Route: 048
  12. PLAQUENIL [Concomitant]
     Indication: RHEUMATOID ARTHRITIS
     Route: 048

REACTIONS (4)
  - ARTHRALGIA [None]
  - ASTHENIA [None]
  - BLOOD PRESSURE DECREASED [None]
  - JOINT SWELLING [None]
